FAERS Safety Report 16161745 (Version 1)
Quarter: 2019Q2

REPORT INFORMATION
  Report Type: Spontaneous
  Country: US (occurrence: US)
  Receive Date: 20190405
  Receipt Date: 20190405
  Transmission Date: 20190711
  Serious: No
  Sender: FDA-Public Use
  Company Number: US-PFIZER INC-2019142075

PATIENT
  Age: 72 Year
  Sex: Male
  Weight: 106.5 kg

DRUGS (1)
  1. GABAPENTIN. [Suspect]
     Active Substance: GABAPENTIN
     Indication: NEUROPATHY PERIPHERAL
     Dosage: 2 PILLS DAILY
     Dates: start: 2015

REACTIONS (1)
  - Drug ineffective for unapproved indication [Unknown]
